FAERS Safety Report 5242342-6 (Version None)
Quarter: 2007Q1

REPORT INFORMATION
  Report Type: 
  Country: None (occurrence: None)
  Receive Date: 20070216
  Receipt Date: 20070216
  Transmission Date: 20070707
  Serious: Yes (Hospitalization)
  Sender: FDA-Public Use
  Company Number: None

PATIENT
  Age: 51 Year
  Sex: Male

DRUGS (2)
  1. GLIPIZIDE [Suspect]
     Indication: DIABETES MELLITUS NON-INSULIN-DEPENDENT
     Dosage: 5 MG BID
     Dates: start: 20060301
  2. REGULAR INSULIN [Suspect]
     Indication: HYPERKALAEMIA
     Dosage: ONCE

REACTIONS (1)
  - HYPOGLYCAEMIA [None]
